FAERS Safety Report 5857515-9 (Version None)
Quarter: 2008Q3

REPORT INFORMATION
  Report Type: 
  Country: None (occurrence: None)
  Receive Date: 20080818
  Receipt Date: 20080717
  Transmission Date: 20090109
  Serious: No
  Sender: FDA-Public Use
  Company Number: TPA2008A01138

PATIENT
  Age: 5 Decade
  Sex: Female

DRUGS (1)
  1. ROZEREM [Suspect]
     Indication: INSOMNIA
     Dosage: 8 MG, QHS, ONCE, PER ORAL
     Route: 048
     Dates: start: 20080701, end: 20080701

REACTIONS (1)
  - ABNORMAL DREAMS [None]
